FAERS Safety Report 13557735 (Version 1)
Quarter: 2017Q2

REPORT INFORMATION
  Report Type: Spontaneous
  Country: FR (occurrence: FR)
  Receive Date: 20170518
  Receipt Date: 20170518
  Transmission Date: 20170830
  Serious: Yes (Hospitalization)
  Sender: FDA-Public Use
  Company Number: FR-PFIZER INC-2017209437

PATIENT
  Age: 74 Year
  Sex: Female

DRUGS (8)
  1. BIPRETERAX /01421201/ [Concomitant]
     Active Substance: INDAPAMIDE\PERINDOPRIL ERBUMINE
  2. LERCANIDIPINE [Concomitant]
     Active Substance: LERCANIDIPINE
  3. ACEBUTOLOL [Concomitant]
     Active Substance: ACEBUTOLOL
  4. DOCETAXEL. [Suspect]
     Active Substance: DOCETAXEL
     Indication: BREAST CANCER
     Dosage: 116 MG (75 MG/M2), CYCLIC
     Route: 041
     Dates: start: 20161220, end: 20170224
  5. ENDOXAN /00021101/ [Suspect]
     Active Substance: CYCLOPHOSPHAMIDE
     Indication: BREAST CANCER
     Dosage: 940 MG (600 MG/M2), CYCLIC
     Route: 041
     Dates: start: 20161220, end: 20170224
  6. PRAVASTATIN. [Concomitant]
     Active Substance: PRAVASTATIN
  7. PREDNISOLONE. [Concomitant]
     Active Substance: PREDNISOLONE
     Indication: ALLERGY PROPHYLAXIS
     Dosage: 100 MG, CYCLIC
     Route: 048
     Dates: start: 20170224, end: 20170224
  8. ONDANSETRON [Concomitant]
     Active Substance: ONDANSETRON
     Indication: PROPHYLAXIS OF NAUSEA AND VOMITING
     Dosage: 1 DF, DAILY CYCLE
     Route: 041
     Dates: start: 20170224

REACTIONS (7)
  - Neutropenia [Recovered/Resolved]
  - Pleural effusion [Recovered/Resolved]
  - Colitis [Recovered/Resolved]
  - General physical health deterioration [Recovering/Resolving]
  - Pyrexia [Recovered/Resolved]
  - Ascites [Recovered/Resolved]
  - Sepsis [Recovered/Resolved]

NARRATIVE: CASE EVENT DATE: 20170225
